FAERS Safety Report 25486247 (Version 1)
Quarter: 2025Q2

REPORT INFORMATION
  Report Type: Spontaneous
  Country: FR (occurrence: FR)
  Receive Date: 20250626
  Receipt Date: 20250626
  Transmission Date: 20250717
  Serious: Yes (Other)
  Sender: ABBVIE
  Company Number: FR-ABBVIE-6340455

PATIENT

DRUGS (1)
  1. RINVOQ [Suspect]
     Active Substance: UPADACITINIB
     Indication: Product used for unknown indication
     Route: 048
     Dates: start: 202403

REACTIONS (8)
  - Lymphoplasmacytoid lymphoma/immunocytoma [Unknown]
  - Rash pruritic [Unknown]
  - Rash papular [Unknown]
  - Dermatitis acneiform [Not Recovered/Not Resolved]
  - Lymphocytic infiltration [Unknown]
  - Granuloma [Unknown]
  - Giant cell epulis [Unknown]
  - Sarcoidosis [Unknown]
